FAERS Safety Report 21927308 (Version 2)
Quarter: 2023Q2

REPORT INFORMATION
  Report Type: Spontaneous
  Country: US (occurrence: US)
  Receive Date: 20230130
  Receipt Date: 20230628
  Transmission Date: 20230722
  Serious: Yes (Other)
  Sender: FDA-Public Use
  Company Number: US-JNJFOC-20230149285

PATIENT
  Age: 2 Year
  Sex: Female

DRUGS (6)
  1. TYLENOL REGULAR STRENGTH [Suspect]
     Active Substance: ACETAMINOPHEN
     Indication: Crohn^s disease
     Dosage: 3-6 TIMES PER WEEK, USED IN FIRST, SECOND AND THIRD TRIMESTER.
     Route: 064
     Dates: start: 201707, end: 201803
  2. TYLENOL REGULAR STRENGTH [Suspect]
     Active Substance: ACETAMINOPHEN
     Indication: Carpal tunnel syndrome
  3. TYLENOL EXTRA STRENGTH [Suspect]
     Active Substance: ACETAMINOPHEN
     Indication: Crohn^s disease
     Dosage: 1-2 TIMES PER WEEK IN FIRST, SECOND AND THIRD TRIMESTER.
     Route: 064
     Dates: start: 201707, end: 201803
  4. TYLENOL EXTRA STRENGTH [Suspect]
     Active Substance: ACETAMINOPHEN
     Indication: Carpal tunnel syndrome
  5. ACETAMINOPHEN [Suspect]
     Active Substance: ACETAMINOPHEN
     Indication: Crohn^s disease
     Dosage: 3-6 TIMES PER WEEK, USED IN FIRST, SECOND AND THIRD TRIMESTER.
     Route: 064
     Dates: start: 201707, end: 201803
  6. ACETAMINOPHEN [Suspect]
     Active Substance: ACETAMINOPHEN
     Indication: Carpal tunnel syndrome

REACTIONS (2)
  - Autism spectrum disorder [Unknown]
  - Foetal exposure during pregnancy [Unknown]

NARRATIVE: CASE EVENT DATE: 20200501
